FAERS Safety Report 9999763 (Version 1)
Quarter: 2014Q1

REPORT INFORMATION
  Report Type: Spontaneous
  Country: US (occurrence: None)
  Receive Date: 20140310
  Receipt Date: 20140310
  Transmission Date: 20141002
  Serious: Yes (Death)
  Sender: FDA-Public Use
  Company Number: TPU2014-00057

PATIENT
  Age: 71 Year
  Sex: Female

DRUGS (2)
  1. LIDODERM [Suspect]
     Indication: BACK PAIN
     Dosage: 1 PLASTER, 1 IN 1 D, TOPICAL
     Dates: start: 20131205, end: 20131205
  2. OTHER 22 MEDICATIONS [Concomitant]

REACTIONS (1)
  - Leukaemia [None]
